FAERS Safety Report 13304450 (Version 2)
Quarter: 2017Q1

REPORT INFORMATION
  Report Type: Spontaneous
  Country: US (occurrence: US)
  Receive Date: 20170308
  Receipt Date: 20170316
  Transmission Date: 20170428
  Serious: Yes (Hospitalization)
  Sender: FDA-Public Use
  Company Number: US-ASTRAZENECA-2017SE21722

PATIENT
  Age: 77 Year
  Sex: Male
  Weight: 83.5 kg

DRUGS (24)
  1. MIRALAX [Concomitant]
     Active Substance: POLYETHYLENE GLYCOL 3350
  2. LEVAQUIN [Concomitant]
     Active Substance: LEVOFLOXACIN
     Dates: start: 20160606
  3. HYDROCODONE [Concomitant]
     Active Substance: HYDROCODONE
  4. PRILOSEC [Suspect]
     Active Substance: OMEPRAZOLE MAGNESIUM
     Indication: DYSPEPSIA
     Route: 048
  5. FOLIC ACID. [Concomitant]
     Active Substance: FOLIC ACID
  6. VITAMIN B12 [Concomitant]
     Active Substance: CYANOCOBALAMIN
  7. ACYCLOVIR. [Concomitant]
     Active Substance: ACYCLOVIR
  8. HYDROCHLOROTHIAZIDE. [Concomitant]
     Active Substance: HYDROCHLOROTHIAZIDE
  9. LEVOTHYROXINE. [Concomitant]
     Active Substance: LEVOTHYROXINE
     Dosage: 75.0MG UNKNOWN
     Dates: start: 20170115
  10. PRILOSEC [Suspect]
     Active Substance: OMEPRAZOLE MAGNESIUM
     Indication: DYSPEPSIA
     Route: 048
  11. SUTENT [Suspect]
     Active Substance: SUNITINIB MALATE
     Indication: RENAL CELL CARCINOMA
     Dosage: 50.0MG UNKNOWN
     Route: 065
     Dates: start: 20160204, end: 20160223
  12. LYRICA [Concomitant]
     Active Substance: PREGABALIN
  13. SOY ISOFLAVONES [Concomitant]
     Active Substance: SOY ISOFLAVONES
  14. MEGACE [Concomitant]
     Active Substance: MEGESTROL ACETATE
     Indication: APPETITE DISORDER
  15. PRILOSEC [Suspect]
     Active Substance: OMEPRAZOLE MAGNESIUM
     Indication: DYSPEPSIA
     Dosage: 20.0MG UNKNOWN
     Route: 048
     Dates: start: 20161101
  16. SUTENT [Suspect]
     Active Substance: SUNITINIB MALATE
     Indication: RENAL CELL CARCINOMA
     Dosage: 50.0MG UNKNOWN
     Route: 065
     Dates: start: 20160302
  17. ASPERCREME WITH LIDOCAINE [Concomitant]
     Active Substance: LIDOCAINE
  18. MUCINEX [Concomitant]
     Active Substance: GUAIFENESIN
  19. NIACIN. [Concomitant]
     Active Substance: NIACIN
  20. PROAIR HFA [Concomitant]
     Active Substance: ALBUTEROL SULFATE
  21. VITAMIN B6 [Concomitant]
     Active Substance: PYRIDOXINE HYDROCHLORIDE
  22. PRILOSEC [Suspect]
     Active Substance: OMEPRAZOLE MAGNESIUM
     Indication: DYSPEPSIA
     Dosage: 20.0MG UNKNOWN
     Route: 048
     Dates: start: 20161101
  23. KYOLIC SUPPLEMENT [Concomitant]
  24. HYDROCODONE BITARTRATE AND ACETAMINOPHEN [Concomitant]
     Active Substance: ACETAMINOPHEN\HYDROCODONE BITARTRATE

REACTIONS (33)
  - Balance disorder [Not Recovered/Not Resolved]
  - Peripheral swelling [Recovered/Resolved]
  - Dizziness [Recovered/Resolved]
  - Dysgeusia [Recovered/Resolved]
  - Pneumonia [Recovered/Resolved]
  - Weight decreased [Recovered/Resolved]
  - Faeces discoloured [Recovered/Resolved]
  - Constipation [Recovered/Resolved]
  - Arthralgia [Not Recovered/Not Resolved]
  - Insomnia [Recovered/Resolved]
  - Muscular weakness [Not Recovered/Not Resolved]
  - Gait disturbance [Recovered/Resolved]
  - Fluid intake reduced [Recovered/Resolved]
  - Pyrexia [Recovered/Resolved]
  - Joint swelling [Not Recovered/Not Resolved]
  - Rash [Not Recovered/Not Resolved]
  - Dysarthria [Recovered/Resolved]
  - Chromaturia [Recovered/Resolved]
  - Breath odour [Recovered/Resolved]
  - Dry mouth [Recovered/Resolved]
  - Abdominal discomfort [Recovered/Resolved]
  - Epistaxis [Recovered/Resolved]
  - Dyspnoea [Recovered/Resolved]
  - Decreased appetite [Recovered/Resolved]
  - Platelet count decreased [Recovered/Resolved]
  - Protein urine present [Recovered/Resolved]
  - Stomatitis [Recovered/Resolved]
  - Chest pain [Recovered/Resolved]
  - Vision blurred [Recovered/Resolved]
  - Fatigue [Recovered/Resolved]
  - Malaise [Unknown]
  - Dysphonia [Not Recovered/Not Resolved]
  - Liver function test increased [Unknown]
